FAERS Safety Report 7051338-3 (Version None)
Quarter: 2010Q4

REPORT INFORMATION
  Report Type: 
  Country: None (occurrence: None)
  Receive Date: 20101018
  Receipt Date: 20101018
  Transmission Date: 20110411
  Serious: Yes (Life-Threatening)
  Sender: FDA-Public Use
  Company Number: None

PATIENT
  Age: 31 Year
  Sex: Female
  Weight: 56.6996 kg

DRUGS (3)
  1. VERAPAMIL [Suspect]
     Indication: CONVULSION
     Dosage: 200 MG 1 TAB 3 X DAILY ORAL 240 MG
     Route: 048
     Dates: start: 20051101
  2. VERAPAMIL [Suspect]
     Indication: MIGRAINE PROPHYLAXIS
     Dosage: 200 MG 1 TAB 3 X DAILY ORAL 240 MG
     Route: 048
     Dates: start: 20051101
  3. CARBAMAZEPINE [Concomitant]

REACTIONS (4)
  - ALCOHOL USE [None]
  - CRYING [None]
  - PANIC REACTION [None]
  - SELF-INJURIOUS IDEATION [None]
